FAERS Safety Report 9984149 (Version 1)
Quarter: 2014Q1

REPORT INFORMATION
  Report Type: Report from Study
  Country: US (occurrence: US)
  Receive Date: 20140307
  Receipt Date: 20140307
  Transmission Date: 20141002
  Serious: Yes (Other)
  Sender: FDA-Public Use
  Company Number: US-ABBVIE-13P-163-1184263-00

PATIENT
  Sex: Female

DRUGS (12)
  1. HUMIRA [Suspect]
     Indication: RHEUMATOID ARTHRITIS
  2. NORVASC [Suspect]
     Indication: HYPERTENSION
     Dates: start: 2011
  3. HYDROCHLOROTHIAZIDE [Suspect]
     Indication: PRODUCT USED FOR UNKNOWN INDICATION
  4. LISINOPRIL [Suspect]
     Indication: HYPERTENSION
  5. METOPROLOL [Suspect]
     Indication: HYPERTENSION
     Dates: start: 201307
  6. PLAQUENIL [Suspect]
     Indication: MUSCULOSKELETAL STIFFNESS
     Dates: start: 20131013, end: 20131108
  7. PLAQUENIL [Suspect]
     Dates: start: 20131212
  8. NAPROXEN [Concomitant]
     Indication: PRODUCT USED FOR UNKNOWN INDICATION
     Dosage: AS NEEDED
  9. CELEBREX [Concomitant]
     Indication: MUSCULOSKELETAL STIFFNESS
     Dosage: AS NEEDED
  10. PATADAY [Concomitant]
     Indication: PRODUCT USED FOR UNKNOWN INDICATION
     Dosage: EYE DROPS 0.03%, 1 DROP IN BOTH EYES
  11. FERROUS SULFATE [Concomitant]
     Indication: PRODUCT USED FOR UNKNOWN INDICATION
     Dosage: LIQUID
  12. LACLOTION [Concomitant]
     Indication: DRY SKIN

REACTIONS (17)
  - Ankle fracture [Recovered/Resolved]
  - Musculoskeletal stiffness [Unknown]
  - Weight increased [Unknown]
  - Injection site pruritus [Not Recovered/Not Resolved]
  - Hypertension [Unknown]
  - Lip dry [Unknown]
  - Oral discomfort [Unknown]
  - Lip exfoliation [Unknown]
  - Headache [Not Recovered/Not Resolved]
  - Pollakiuria [Unknown]
  - Cough [Unknown]
  - Gastrooesophageal reflux disease [Not Recovered/Not Resolved]
  - Cartilage injury [Not Recovered/Not Resolved]
  - Diarrhoea [Recovered/Resolved]
  - Protein total increased [Not Recovered/Not Resolved]
  - Gingival inflammation [Not Recovered/Not Resolved]
  - Tooth fracture [Not Recovered/Not Resolved]
